FAERS Safety Report 8285357-6 (Version None)
Quarter: 2012Q2

REPORT INFORMATION
  Report Type: 
  Country: None (occurrence: None)
  Receive Date: 20120413
  Receipt Date: 20120410
  Transmission Date: 20120825
  Serious: No
  Sender: FDA-Public Use
  Company Number: US-PFIZER INC-2012019947

PATIENT
  Sex: Male
  Weight: 38 kg

DRUGS (2)
  1. GENOTROPIN [Suspect]
     Indication: GROWTH HORMONE DEFICIENCY
     Dosage: 0.9 MG, DAILY
     Route: 058
     Dates: start: 20120115
  2. LUPRON DEPOT [Concomitant]
     Dosage: 11.25 MG, 1 MG ANY 4 WEEKS
     Dates: start: 20110802

REACTIONS (1)
  - RASH [None]
